FAERS Safety Report 5763231-4 (Version None)
Quarter: 2008Q2

REPORT INFORMATION
  Report Type: 
  Country: None (occurrence: None)
  Receive Date: 20080609
  Receipt Date: 20080528
  Transmission Date: 20081010
  Serious: Yes (Hospitalization, Other)
  Sender: FDA-Public Use
  Company Number: JP-PFIZER INC-2008047759

PATIENT
  Sex: Male
  Weight: 54 kg

DRUGS (4)
  1. CABASER [Suspect]
     Indication: PARKINSON'S DISEASE
     Dosage: TEXT:2-3 MG
     Route: 048
  2. SYMMETREL [Concomitant]
     Route: 048
  3. ARTANE [Concomitant]
     Route: 048
  4. SIFROL [Concomitant]
     Route: 048

REACTIONS (2)
  - BASEDOW'S DISEASE [None]
  - MITRAL VALVE INCOMPETENCE [None]
